FAERS Safety Report 23978563 (Version 2)
Quarter: 2024Q3

REPORT INFORMATION
  Report Type: Spontaneous
  Country: US (occurrence: US)
  Receive Date: 20240614
  Receipt Date: 20240730
  Transmission Date: 20241017
  Serious: Yes (Other)
  Sender: CALLIDITAS THERAPEUTICS
  Company Number: US-Calliditas-2024CAL00954

PATIENT
  Age: 63 Year
  Sex: Female

DRUGS (1)
  1. TARPEYO [Suspect]
     Active Substance: BUDESONIDE
     Indication: IgA nephropathy
     Route: 048
     Dates: start: 20240511

REACTIONS (6)
  - Oedema [Unknown]
  - Malaise [Unknown]
  - Mental disorder [Unknown]
  - Renal impairment [Unknown]
  - Blood pressure increased [Unknown]
  - Fatigue [Unknown]
